FAERS Safety Report 20924847 (Version 11)
Quarter: 2024Q2

REPORT INFORMATION
  Report Type: Spontaneous
  Country: CA (occurrence: CA)
  Receive Date: 20220607
  Receipt Date: 20240624
  Transmission Date: 20240715
  Serious: Yes (Other)
  Sender: FDA-Public Use
  Company Number: CA-PFIZER INC-202200771707

PATIENT
  Age: 58 Year
  Sex: Female
  Weight: 78 kg

DRUGS (31)
  1. RUXIENCE [Suspect]
     Active Substance: RITUXIMAB-PVVR
     Indication: Antisynthetase syndrome
     Dosage: 1000 MG, DAY 1 AND DAY 15
     Route: 042
     Dates: start: 20220526, end: 20220609
  2. RUXIENCE [Suspect]
     Active Substance: RITUXIMAB-PVVR
     Dosage: 1000 MG, DAY 1 AND DAY 15
     Route: 042
     Dates: start: 20220609
  3. RUXIENCE [Suspect]
     Active Substance: RITUXIMAB-PVVR
     Dosage: 1000 MG, DAY 1 AND DAY 15 (FIRST DOSE OF A SECOND CYCLE )
     Route: 042
     Dates: start: 20230117, end: 20230201
  4. RUXIENCE [Suspect]
     Active Substance: RITUXIMAB-PVVR
     Dosage: 1000 MG, DAY 1 AND DAY 15
     Route: 042
     Dates: start: 20230201
  5. RUXIENCE [Suspect]
     Active Substance: RITUXIMAB-PVVR
     Dosage: 1000 MG, DAY 1 AND DAY 15
     Route: 042
     Dates: start: 20230927, end: 20231011
  6. RUXIENCE [Suspect]
     Active Substance: RITUXIMAB-PVVR
     Dosage: 1000 MG, 2 WEEKS (DAY 15 TREATMENT)
     Route: 042
     Dates: start: 20231011
  7. RUXIENCE [Suspect]
     Active Substance: RITUXIMAB-PVVR
     Dosage: 1000 MG, DAY 1 AND DAY 15 (1000 MG, DAY 1)
     Route: 042
     Dates: start: 20240603
  8. RUXIENCE [Suspect]
     Active Substance: RITUXIMAB-PVVR
     Dosage: 1000 MG AFTER 2 WEEKS AND 3 DAYS (1000 MG, DAY 1 AND DAY 15)
     Route: 042
     Dates: start: 20240620
  9. CALCIUM [Concomitant]
     Active Substance: CALCIUM
     Dosage: 500 MG
  10. CHLOPHEDIANOL HCL [Concomitant]
     Dosage: 25 MG
  11. CHLORURE POTASSIUM [Concomitant]
     Dosage: UNK
  12. CLEARLAX [SENNOSIDE A+B] [Concomitant]
     Dosage: 17 MG
  13. DEPO-MEDROL [Concomitant]
     Active Substance: METHYLPREDNISOLONE ACETATE
     Dosage: 40 MG
  14. DOCUSATE SODIUM [Concomitant]
     Active Substance: DOCUSATE SODIUM
     Dosage: 50 MG
  15. FUROSEMIDE [Concomitant]
     Active Substance: FUROSEMIDE
     Dosage: 20 MG
  16. LACTULOSE [Concomitant]
     Active Substance: LACTULOSE
     Dosage: 15 ML
  17. METFORMIN [Concomitant]
     Active Substance: METFORMIN HYDROCHLORIDE
     Dosage: 500 MG
  18. METHYLPREDNISOLONE [Concomitant]
     Active Substance: METHYLPREDNISOLONE
     Indication: Premedication
     Dosage: 100 MG
  19. METHYLPREDNISOLONE [Concomitant]
     Active Substance: METHYLPREDNISOLONE
     Dosage: 100 MG
     Dates: start: 20220609, end: 20220609
  20. METHYLPREDNISOLONE [Concomitant]
     Active Substance: METHYLPREDNISOLONE
     Dosage: 100 MG
     Dates: start: 20230117, end: 20230117
  21. METHYLPREDNISOLONE [Concomitant]
     Active Substance: METHYLPREDNISOLONE
     Dosage: 100 MG
     Dates: start: 20230201, end: 20230201
  22. METHYLPREDNISOLONE [Concomitant]
     Active Substance: METHYLPREDNISOLONE
     Dosage: 100 MG
     Dates: start: 20231011, end: 20231011
  23. PANTOPRAZOLE SODIUM [Concomitant]
     Active Substance: PANTOPRAZOLE SODIUM
     Dosage: 40 MG
  24. PREDNISONE [Concomitant]
     Active Substance: PREDNISONE
     Dosage: 5 MG
  25. PREGABALIN [Concomitant]
     Active Substance: PREGABALIN
     Dosage: 50 MG
  26. SENNOSIDES [Concomitant]
     Active Substance: SENNOSIDES
     Dosage: 8.6 MG
  27. SUCRALFATE [Concomitant]
     Active Substance: SUCRALFATE
     Dosage: 4 G
  28. VALACYCLOVIR [Concomitant]
     Active Substance: VALACYCLOVIR HYDROCHLORIDE
     Dosage: 1000 MG, FREQUENCY UNKNOWN
     Route: 048
     Dates: start: 20240418
  29. VENTOLIN [Concomitant]
     Active Substance: ALBUTEROL SULFATE
     Dosage: 100 UG
  30. CHOLECALCIFEROL [Concomitant]
     Active Substance: CHOLECALCIFEROL
     Dosage: 400 IU
  31. ZOPICLONE [Concomitant]
     Active Substance: ZOPICLONE
     Dosage: 7.5 MG

REACTIONS (9)
  - Oxygen saturation decreased [Unknown]
  - Pneumonia [Recovered/Resolved]
  - Pulmonary mass [Not Recovered/Not Resolved]
  - Lung disorder [Not Recovered/Not Resolved]
  - Drug ineffective for unapproved indication [Unknown]
  - Off label use [Unknown]
  - Neck pain [Recovered/Resolved]
  - Urinary tract infection [Recovered/Resolved]
  - General physical health deterioration [Not Recovered/Not Resolved]

NARRATIVE: CASE EVENT DATE: 20220526
